FAERS Safety Report 17873947 (Version 1)
Quarter: 2020Q2

REPORT INFORMATION
  Report Type: Spontaneous
  Country: US (occurrence: US)
  Receive Date: 20200609
  Receipt Date: 20200609
  Transmission Date: 20200714
  Serious: Yes (Other)
  Sender: FDA-Public Use
  Company Number: US-SA-2020SA145513

PATIENT

DRUGS (22)
  1. ADVAIR HFA [Concomitant]
     Active Substance: FLUTICASONE PROPIONATE\SALMETEROL XINAFOATE
  2. CLARITIN [Concomitant]
     Active Substance: LORATADINE
  3. LEVOTHYROXIN [Concomitant]
     Active Substance: LEVOTHYROXINE
  4. SPIRIVA [Concomitant]
     Active Substance: TIOTROPIUM BROMIDE MONOHYDRATE
  5. DUPIXENT [Suspect]
     Active Substance: DUPILUMAB
     Indication: ASTHMA
     Dosage: 300 MG, QOW
     Route: 058
     Dates: start: 20190430
  6. ADDERALL [Concomitant]
     Active Substance: AMPHETAMINE ASPARTATE\AMPHETAMINE SULFATE\DEXTROAMPHETAMINE SACCHARATE\DEXTROAMPHETAMINE SULFATE
  7. ALBUTEROL [SALBUTAMOL] [Concomitant]
     Active Substance: ALBUTEROL
  8. BUDESONIDE. [Concomitant]
     Active Substance: BUDESONIDE
  9. BUPROPION. [Concomitant]
     Active Substance: BUPROPION
  10. LORATADINE. [Concomitant]
     Active Substance: LORATADINE
  11. SINGULAIR [Concomitant]
     Active Substance: MONTELUKAST SODIUM
  12. HYDROCHLOROTH [Concomitant]
     Active Substance: HYDROCHLOROTHIAZIDE
  13. PREDNISONE. [Concomitant]
     Active Substance: PREDNISONE
  14. ASPIRIN [ACETYLSALICYLIC ACID] [Concomitant]
     Active Substance: ASPIRIN
  15. FLONASE [MOMETASONE FUROATE] [Concomitant]
     Active Substance: MOMETASONE FUROATE
  16. MONTELUKAST [Concomitant]
     Active Substance: MONTELUKAST SODIUM
  17. AMITIZA [Concomitant]
     Active Substance: LUBIPROSTONE
  18. OFLOXACIN. [Concomitant]
     Active Substance: OFLOXACIN
  19. ROSUVASTATIN. [Concomitant]
     Active Substance: ROSUVASTATIN
  20. SUMATRIPTAN. [Concomitant]
     Active Substance: SUMATRIPTAN
  21. VENTOLIN [Concomitant]
     Active Substance: ALBUTEROL SULFATE
  22. VITAMIN D [VITAMIN D NOS] [Concomitant]
     Active Substance: VITAMIN D NOS

REACTIONS (3)
  - Pneumonia [Not Recovered/Not Resolved]
  - Asthma [Unknown]
  - Skin burning sensation [Unknown]

NARRATIVE: CASE EVENT DATE: 2020
